FAERS Safety Report 4488029-9 (Version None)
Quarter: 2004Q4

REPORT INFORMATION
  Report Type: 
  Country: None (occurrence: None)
  Receive Date: 20041028
  Receipt Date: 20041015
  Transmission Date: 20050328
  Serious: Yes (Hospitalization)
  Sender: FDA-Public Use
  Company Number: US-JNJFOC-20041005012

PATIENT
  Age: 71 Year
  Sex: Female
  Weight: 115.21 kg

DRUGS (26)
  1. NATRECOR [Suspect]
     Dosage: BOLUS 38 ML FOLLOWED BY 11 ML/HOUR INFUSION
  2. LEVAQUIN [Concomitant]
  3. PREVACID [Concomitant]
  4. MULTI-VITAMIN [Concomitant]
  5. MULTI-VITAMIN [Concomitant]
  6. MULTI-VITAMIN [Concomitant]
  7. MULTI-VITAMIN [Concomitant]
  8. MULTI-VITAMIN [Concomitant]
  9. MULTI-VITAMIN [Concomitant]
  10. MULTI-VITAMIN [Concomitant]
  11. MULTI-VITAMIN [Concomitant]
  12. INSULIN [Concomitant]
  13. COREG [Concomitant]
  14. ALLOPURINOL [Concomitant]
  15. POTASSIUM [Concomitant]
  16. LORACET [Concomitant]
  17. DITROPAN [Concomitant]
  18. B+O SUPPOSITORIES [Concomitant]
  19. B+O SUPPOSITORIES [Concomitant]
  20. ZAROXOLYN [Concomitant]
  21. LASIX [Concomitant]
     Route: 042
  22. NASONEX [Concomitant]
  23. COMBIVENT [Concomitant]
  24. COMBIVENT [Concomitant]
  25. VITAMIN K [Concomitant]
  26. COUMADIN [Concomitant]

REACTIONS (1)
  - HYPOTHERMIA [None]
